FAERS Safety Report 15073755 (Version 1)
Quarter: 2018Q2

REPORT INFORMATION
  Report Type: Spontaneous
  Country: PR (occurrence: PR)
  Receive Date: 20180606
  Receipt Date: 20180606
  Transmission Date: 20180711
  Serious: No
  Sender: FDA-Public Use
  Company Number: None

PATIENT
  Age: 36 Year
  Sex: Female
  Weight: 67.5 kg

DRUGS (2)
  1. LINEZOLID. [Concomitant]
     Active Substance: LINEZOLID
     Dates: start: 20180515, end: 20180524
  2. PENICILLIN G POTASSIUM. [Suspect]
     Active Substance: PENICILLIN G POTASSIUM
     Route: 041
     Dates: start: 20180515, end: 20180528

REACTIONS (1)
  - Lip oedema [None]
